FAERS Safety Report 4564164-1 (Version None)
Quarter: 2005Q1

REPORT INFORMATION
  Report Type: 
  Country: None (occurrence: None)
  Receive Date: 20050126
  Receipt Date: 20050113
  Transmission Date: 20050727
  Serious: Yes (Other)
  Sender: FDA-Public Use
  Company Number: 2005014864

PATIENT
  Sex: Female

DRUGS (5)
  1. VIAGRA [Suspect]
     Indication: PULMONARY HYPERTENSION
     Dosage: 50 MG (50 MG, 1 IN 1 D), ORAL
     Route: 048
     Dates: start: 20040220
  2. LOSARTAN (LOSARTAN) [Concomitant]
  3. PENTOXIFYLLINE [Concomitant]
  4. PREDNISONE [Concomitant]
  5. FEMILAR (CYPROTERONE ACETATE, ESTRADIOL VALERATE) [Concomitant]

REACTIONS (2)
  - ECONOMIC PROBLEM [None]
  - PULMONARY ARTERIAL PRESSURE INCREASED [None]
